FAERS Safety Report 6229729-X (Version None)
Quarter: 2009Q2

REPORT INFORMATION
  Report Type: 
  Country: None (occurrence: None)
  Receive Date: 20090615
  Receipt Date: 20090610
  Transmission Date: 20091009
  Serious: No
  Sender: FDA-Public Use
  Company Number: US-B.I. PHARMACEUTICALS,INC./RIDGEFIELD-2009-BP-06518BP

PATIENT
  Sex: Female

DRUGS (4)
  1. SPIRIVA [Suspect]
     Indication: DYSPNOEA
     Dosage: 18MCG
     Route: 055
     Dates: start: 20090328, end: 20090527
  2. ADVAIR DISKUS 100/50 [Concomitant]
     Route: 055
     Dates: start: 20080101
  3. ASPIRIN [Concomitant]
  4. INHALER [Concomitant]

REACTIONS (2)
  - APHASIA [None]
  - LARYNGITIS [None]
